FAERS Safety Report 13526659 (Version 6)
Quarter: 2018Q2

REPORT INFORMATION
  Report Type: Report from Study
  Country: CA (occurrence: CA)
  Receive Date: 20170509
  Receipt Date: 20180605
  Transmission Date: 20180711
  Serious: Yes (Death, Life-Threatening, Hospitalization)
  Sender: FDA-Public Use
  Company Number: PHHO2017CA007715

PATIENT
  Age: 53 Year
  Sex: Female
  Weight: 71.7 kg

DRUGS (12)
  1. COMPARATOR GOSERELIN [Suspect]
     Active Substance: GOSERELIN
     Indication: BREAST CANCER METASTATIC
     Dosage: 3.6 MG, UNK
     Route: 058
     Dates: start: 20160421, end: 20170222
  2. DALTEPARIN [Suspect]
     Active Substance: DALTEPARIN
     Dosage: 10000 IU, QD
     Route: 058
     Dates: start: 20170322
  3. DALTEPARIN [Suspect]
     Active Substance: DALTEPARIN
     Indication: PULMONARY EMBOLISM
     Dosage: 12500 IU, QD
     Route: 058
     Dates: start: 20170312, end: 20170318
  4. DALTEPARIN [Suspect]
     Active Substance: DALTEPARIN
     Dosage: 5000 IU, QD
     Route: 058
     Dates: start: 20170321, end: 20170321
  5. ZOLOFT [Concomitant]
     Active Substance: SERTRALINE HYDROCHLORIDE
     Indication: DEPRESSION
     Dosage: 50 MG, QD
     Route: 048
     Dates: start: 20160412
  6. TUMS [Concomitant]
     Active Substance: CALCIUM CARBONATE
     Indication: MINERAL SUPPLEMENTATION
     Dosage: 500 MG, BID
     Route: 048
     Dates: start: 201404
  7. VITAMIN D [Concomitant]
     Active Substance: CHOLECALCIFEROL
     Indication: SUPPLEMENTATION THERAPY
     Dosage: 1000 1U, QD
     Route: 048
     Dates: start: 201404
  8. COMPARATOR TAMOXIFEN [Suspect]
     Active Substance: TAMOXIFEN
     Indication: BREAST CANCER METASTATIC
     Dosage: 20 MG, UNK
     Route: 048
     Dates: start: 20160421, end: 20170504
  9. DALTEPARIN [Suspect]
     Active Substance: DALTEPARIN
     Dosage: 5000 IU, QD
     Route: 058
     Dates: start: 20170319, end: 20170319
  10. XARELTO [Concomitant]
     Active Substance: RIVAROXABAN
     Indication: PULMONARY EMBOLISM
     Dosage: 20 MG, QD
     Route: 048
     Dates: start: 20161124
  11. TYLENOL [Concomitant]
     Active Substance: ACETAMINOPHEN
     Indication: HEADACHE
     Dosage: 500 MG, PRN
     Route: 048
     Dates: start: 20160609
  12. LEE011 [Suspect]
     Active Substance: RIBOCICLIB
     Indication: BREAST CANCER METASTATIC
     Dosage: 600 MG, QD
     Route: 048
     Dates: start: 20160421, end: 20170428

REACTIONS (3)
  - Cerebral infarction [Not Recovered/Not Resolved]
  - Superior sagittal sinus thrombosis [Not Recovered/Not Resolved]
  - Haemorrhage intracranial [Fatal]

NARRATIVE: CASE EVENT DATE: 20170427
